FAERS Safety Report 4853764-7 (Version None)
Quarter: 2005Q4

REPORT INFORMATION
  Report Type: 
  Country: None (occurrence: None)
  Receive Date: 20051212
  Receipt Date: 20051128
  Transmission Date: 20060501
  Serious: Yes (Hospitalization, Other)
  Sender: FDA-Public Use
  Company Number: 2005136251

PATIENT
  Age: 84 Year
  Sex: Male
  Weight: 40.8237 kg

DRUGS (4)
  1. DETROL LA [Suspect]
     Indication: POLLAKIURIA
     Dosage: 8 MG (4 MG, 2 IN 1 D), ORAL
     Route: 048
     Dates: start: 20040301, end: 20050901
  2. HYDROCHLOROTHIAZIDE [Concomitant]
  3. COREG [Concomitant]
  4. FLOMAX [Concomitant]

REACTIONS (6)
  - DRUG INEFFECTIVE [None]
  - GLAUCOMA [None]
  - HIP ARTHROPLASTY [None]
  - PNEUMONIA [None]
  - POLLAKIURIA [None]
  - TREATMENT NONCOMPLIANCE [None]
